FAERS Safety Report 9716594 (Version 2)
Quarter: 2014Q1

REPORT INFORMATION
  Report Type: Spontaneous
  Country: US (occurrence: US)
  Receive Date: 20131127
  Receipt Date: 20140103
  Transmission Date: 20141002
  Serious: No
  Sender: FDA-Public Use
  Company Number: US-009507513-1311USA010118

PATIENT
  Sex: Female

DRUGS (1)
  1. SAPHRIS [Suspect]
     Dosage: TOTAL DAILY DOSE-1
     Route: 060

REACTIONS (3)
  - Adverse event [Unknown]
  - Dysgeusia [Unknown]
  - Product taste abnormal [Unknown]
